FAERS Safety Report 10049644 (Version 3)
Quarter: 2014Q2

REPORT INFORMATION
  Report Type: Report from Study
  Country: PT (occurrence: PT)
  Receive Date: 20140401
  Receipt Date: 20140422
  Transmission Date: 20141212
  Serious: Yes (Other)
  Sender: FDA-Public Use
  Company Number: PHHY2014PT031630

PATIENT
  Age: 44 Year
  Sex: Male

DRUGS (2)
  1. EXTAVIA [Suspect]
     Indication: MULTIPLE SCLEROSIS
     Dosage: DOSE TITRATION OF 0.25 ML
     Route: 058
  2. EXTAVIA [Suspect]
     Dosage: 250 UG, QOD
     Route: 058
     Dates: start: 20140310

REACTIONS (5)
  - Limb discomfort [Recovering/Resolving]
  - Muscular weakness [Recovering/Resolving]
  - Gait disturbance [Recovering/Resolving]
  - Fatigue [Recovering/Resolving]
  - Asthenia [Recovering/Resolving]
